FAERS Safety Report 7415008-1 (Version None)
Quarter: 2011Q2

REPORT INFORMATION
  Report Type: 
  Country: None (occurrence: None)
  Receive Date: 20110414
  Receipt Date: 20110412
  Transmission Date: 20111010
  Serious: Yes (Other)
  Sender: FDA-Public Use
  Company Number: DE-ROCHE-748300

PATIENT
  Sex: Female
  Weight: 71 kg

DRUGS (3)
  1. AERODUR [Concomitant]
     Route: 055
  2. TRASTUZUMAB [Suspect]
     Indication: BREAST CANCER
     Dosage: 4 INFUSIONS ALREADY GIVEN, LOADING DOSAGE: 8 MG/KG
     Route: 042
     Dates: start: 20100929, end: 20101201
  3. PULMICORT [Concomitant]
     Route: 055

REACTIONS (1)
  - STATUS ASTHMATICUS [None]
